FAERS Safety Report 11036852 (Version 1)
Quarter: 2015Q2

REPORT INFORMATION
  Report Type: Spontaneous
  Country: US (occurrence: None)
  Receive Date: 20150415
  Receipt Date: 20150415
  Transmission Date: 20150821
  Serious: No
  Sender: FDA-Public Use
  Company Number: None

PATIENT
  Age: 91 Year
  Sex: Female
  Weight: 68.04 kg

DRUGS (8)
  1. CELECOXIB. [Suspect]
     Active Substance: CELECOXIB
     Indication: ARTHRITIS
     Dosage: ONE
     Route: 048
     Dates: start: 20150212, end: 20150325
  2. FIBER PILL [Concomitant]
  3. XANAX [Concomitant]
     Active Substance: ALPRAZOLAM
  4. EYECAP VITAMINS [Concomitant]
  5. PRILOSEC [Concomitant]
     Active Substance: OMEPRAZOLE MAGNESIUM
  6. CELEXA [Concomitant]
     Active Substance: CITALOPRAM HYDROBROMIDE
  7. BABY ASPIRIN [Concomitant]
     Active Substance: ASPIRIN
  8. CALCIUM [Concomitant]
     Active Substance: CALCIUM

REACTIONS (2)
  - Nausea [None]
  - Product substitution issue [None]

NARRATIVE: CASE EVENT DATE: 20150212
